FAERS Safety Report 12602915 (Version 1)
Quarter: 2016Q3

REPORT INFORMATION
  Report Type: Spontaneous
  Country: IT (occurrence: IT)
  Receive Date: 20160728
  Receipt Date: 20160728
  Transmission Date: 20161109
  Serious: Yes (Other)
  Sender: FDA-Public Use
  Company Number: IT-PFIZER INC-2016319349

PATIENT
  Age: 53 Year
  Sex: Female

DRUGS (7)
  1. SALAZOPYRIN EN [Suspect]
     Active Substance: SULFASALAZINE
     Indication: SPONDYLITIS
     Dosage: 3 G, DAILY
     Route: 048
     Dates: start: 20030101
  2. CIMZIA [Suspect]
     Active Substance: CERTOLIZUMAB PEGOL
     Indication: SPONDYLITIS
     Dosage: 200 MG, CYCLIC
     Route: 058
     Dates: start: 20150630
  3. FOLIC ACID. [Concomitant]
     Active Substance: FOLIC ACID
  4. VALPROIC ACID. [Concomitant]
     Active Substance: VALPROIC ACID
  5. EUTIROX [Concomitant]
     Active Substance: LEVOTHYROXINE SODIUM
  6. DIBASE [Concomitant]
     Active Substance: CHOLECALCIFEROL
  7. TRITTICO [Concomitant]
     Active Substance: TRAZODONE HYDROCHLORIDE

REACTIONS (1)
  - Ophthalmic herpes zoster [Recovered/Resolved]

NARRATIVE: CASE EVENT DATE: 20160227
